FAERS Safety Report 11131562 (Version 2)
Quarter: 2015Q2

REPORT INFORMATION
  Report Type: Spontaneous
  Country: SE (occurrence: SE)
  Receive Date: 20150522
  Receipt Date: 20150529
  Transmission Date: 20150821
  Serious: Yes (Other)
  Sender: FDA-Public Use
  Company Number: SE-JNJFOC-20150512216

PATIENT
  Age: 22 Year
  Sex: Female

DRUGS (2)
  1. IPREN SUPPOSITORY [Suspect]
     Active Substance: IBUPROFEN
     Indication: DYSMENORRHOEA
     Dosage: 1-3 ADMINISTRATION PER PERIOD
     Route: 054
     Dates: start: 2008, end: 20150515
  2. ALVEDON [Suspect]
     Active Substance: ACETAMINOPHEN
     Indication: DYSMENORRHOEA
     Dosage: 500-1000 MG
     Route: 065

REACTIONS (1)
  - Dependence [Unknown]
